FAERS Safety Report 25458877 (Version 1)
Quarter: 2025Q2

REPORT INFORMATION
  Report Type: Spontaneous
  Country: CN (occurrence: CN)
  Receive Date: 20250620
  Receipt Date: 20250620
  Transmission Date: 20250716
  Serious: Yes (Hospitalization, Other)
  Sender: BEIGENE
  Company Number: CN-BEIGENE-BGN-2025-009629

PATIENT
  Age: 66 Year
  Weight: 55 kg

DRUGS (8)
  1. TISLELIZUMAB [Suspect]
     Active Substance: TISLELIZUMAB
     Indication: Tonsil cancer
     Dosage: 200 MILLIGRAM, Q3WK
  2. TISLELIZUMAB [Suspect]
     Active Substance: TISLELIZUMAB
     Dosage: 200 MILLIGRAM, Q3WK
     Route: 041
  3. TISLELIZUMAB [Suspect]
     Active Substance: TISLELIZUMAB
     Dosage: 200 MILLIGRAM, Q3WK
     Route: 041
  4. TISLELIZUMAB [Suspect]
     Active Substance: TISLELIZUMAB
     Dosage: 200 MILLIGRAM, Q3WK
  5. PACLITAXEL [Concomitant]
     Active Substance: PACLITAXEL
     Indication: Tonsil cancer
     Route: 041
  6. PACLITAXEL [Concomitant]
     Active Substance: PACLITAXEL
  7. NEDAPLATIN [Concomitant]
     Active Substance: NEDAPLATIN
     Indication: Tonsil cancer
     Route: 041
  8. NEDAPLATIN [Concomitant]
     Active Substance: NEDAPLATIN

REACTIONS (1)
  - Drug eruption [Recovering/Resolving]
